FAERS Safety Report 10026939 (Version 1)
Quarter: 2014Q1

REPORT INFORMATION
  Report Type: Spontaneous
  Country: FR (occurrence: FR)
  Receive Date: 20140321
  Receipt Date: 20140321
  Transmission Date: 20141002
  Serious: Yes (Death, Hospitalization)
  Sender: FDA-Public Use
  Company Number: FR-JNJFOC-20140309013

PATIENT
  Age: 34 Year
  Sex: Male

DRUGS (14)
  1. XARELTO [Suspect]
     Indication: CEREBROVASCULAR ACCIDENT PROPHYLAXIS
     Route: 048
     Dates: start: 20130529, end: 20130711
  2. XARELTO [Suspect]
     Indication: ATRIAL FIBRILLATION
     Route: 048
     Dates: start: 20130529, end: 20130711
  3. KARDEGIC [Suspect]
     Indication: MYOCARDIAL ISCHAEMIA
     Route: 048
  4. TAHOR [Concomitant]
     Route: 065
  5. ODRIK [Concomitant]
     Route: 065
  6. AOTAL [Concomitant]
     Route: 065
  7. ISOPTINE [Concomitant]
     Route: 065
  8. CORVASAL [Concomitant]
     Route: 065
  9. MEDIATENSYL [Concomitant]
     Route: 065
  10. VENLAFAXINE [Concomitant]
     Route: 065
  11. ALPRAZOLAM [Concomitant]
     Route: 065
  12. LASILIX [Concomitant]
     Route: 065
  13. CORDARONE [Concomitant]
     Route: 065
  14. FORADIL [Concomitant]
     Route: 065

REACTIONS (5)
  - Subdural haematoma [Fatal]
  - Epistaxis [Fatal]
  - Haematoma [Fatal]
  - Haematuria [Fatal]
  - Gait disturbance [Fatal]
